FAERS Safety Report 8609673-0 (Version None)
Quarter: 2012Q3

REPORT INFORMATION
  Report Type: 
  Country: None (occurrence: None)
  Receive Date: 20120821
  Receipt Date: 20120816
  Transmission Date: 20120928
  Serious: No
  Sender: FDA-Public Use
  Company Number: US-PFIZER INC-2012201214

PATIENT
  Age: 70 Year
  Sex: Male
  Weight: 68.934 kg

DRUGS (8)
  1. OMEPRAZOLE [Concomitant]
     Indication: GASTROOESOPHAGEAL REFLUX DISEASE
     Dosage: UNK
  2. FLUTICASONE PROPIONATE [Concomitant]
     Indication: EMPHYSEMA
     Dosage: UNK
  3. FLOMAX [Concomitant]
     Indication: PROSTATIC DISORDER
     Dosage: 4 MG, UNK
  4. NEURONTIN [Suspect]
     Indication: PAIN
     Dosage: 100 MG, 2X/DAY
     Dates: start: 20120815
  5. CYMBALTA [Concomitant]
     Indication: DEPRESSION
     Dosage: 30 MG, UNK
  6. SPIRIVA [Concomitant]
     Indication: EMPHYSEMA
     Dosage: UNK
  7. OXYGEN [Concomitant]
     Indication: EMPHYSEMA
     Dosage: UNK
  8. ALBUTEROL [Concomitant]
     Indication: EMPHYSEMA
     Dosage: UNK

REACTIONS (2)
  - PRE-EXISTING CONDITION IMPROVED [None]
  - THERAPEUTIC RESPONSE UNEXPECTED [None]
